FAERS Safety Report 15795317 (Version 2)
Quarter: 2019Q1

REPORT INFORMATION
  Report Type: Spontaneous
  Country: US (occurrence: US)
  Receive Date: 20190107
  Receipt Date: 20190114
  Transmission Date: 20190417
  Serious: Yes (Other)
  Sender: FDA-Public Use
  Company Number: US-NAPPMUNDI-USA-2019-0145585

PATIENT

DRUGS (2)
  1. OXYCONTIN [Suspect]
     Active Substance: OXYCODONE HYDROCHLORIDE
     Dosage: 40 MG, QID
     Route: 048
     Dates: start: 2010, end: 2016
  2. OXYCONTIN [Suspect]
     Active Substance: OXYCODONE HYDROCHLORIDE
     Indication: PRODUCT USED FOR UNKNOWN INDICATION
     Dosage: 10 MG, BID
     Route: 048

REACTIONS (5)
  - Drug detoxification [Unknown]
  - Weight increased [Unknown]
  - Spinal operation [Unknown]
  - Off label use [Recovered/Resolved]
  - Disability [Unknown]

NARRATIVE: CASE EVENT DATE: 2010
